FAERS Safety Report 9458989 (Version 1)
Quarter: 2013Q3

REPORT INFORMATION
  Report Type: Spontaneous
  Country: CN (occurrence: CN)
  Receive Date: 20130814
  Receipt Date: 20130814
  Transmission Date: 20140515
  Serious: Yes (Other)
  Sender: FDA-Public Use
  Company Number: CN-BRACCO-000498

PATIENT
  Age: 65 Year
  Sex: Female
  Weight: 44 kg

DRUGS (2)
  1. IOPAMIDOL [Suspect]
     Indication: COMPUTERISED TOMOGRAM
     Route: 042
     Dates: start: 20120315, end: 20120315
  2. DEXAMETHASONE [Concomitant]
     Route: 042
     Dates: start: 20120315, end: 20120315

REACTIONS (2)
  - Binocular eye movement disorder [Recovered/Resolved]
  - Anaphylactoid reaction [Recovered/Resolved]
